FAERS Safety Report 15877743 (Version 1)
Quarter: 2019Q1

REPORT INFORMATION
  Report Type: Spontaneous
  Country: DE (occurrence: DE)
  Receive Date: 20190128
  Receipt Date: 20190128
  Transmission Date: 20190417
  Serious: Yes (Life-Threatening, Hospitalization, Other)
  Sender: FDA-Public Use
  Company Number: DE-009507513-1901DEU008708

PATIENT
  Age: 75 Year
  Sex: Male
  Weight: 75 kg

DRUGS (8)
  1. KEYTRUDA [Suspect]
     Active Substance: PEMBROLIZUMAB
     Indication: BRONCHIAL CARCINOMA
     Dosage: 200 MILLIGRAM, Q3W(21 DAYS)
     Dates: start: 20181214, end: 20190103
  2. AMLODIGAMMA [Concomitant]
     Dosage: 1 TABLET TWICE DAILY
     Route: 048
     Dates: start: 201811
  3. ASPIRIN. [Concomitant]
     Active Substance: ASPIRIN
     Dosage: UNK
     Route: 048
     Dates: start: 201811
  4. HEPARIN SODIUM. [Concomitant]
     Active Substance: HEPARIN SODIUM
     Dosage: 1 TWICE DAILY, STRENGH 7500 UNIT NOT REPORTED
     Dates: start: 201811
  5. TARGIN [Concomitant]
     Active Substance: NALOXONE HYDROCHLORIDE\OXYCODONE HYDROCHLORIDE
     Dosage: 3 TABLETS TWICE DAILY
     Route: 048
     Dates: start: 201811
  6. METOPROLOL. [Concomitant]
     Active Substance: METOPROLOL
     Dosage: 1 TABLET ONCE DAILY
     Route: 048
     Dates: start: 201811
  7. CANDESARTAN. [Concomitant]
     Active Substance: CANDESARTAN
     Dosage: 1 TABLET TWICE DAILY
     Route: 048
     Dates: start: 201811
  8. NOVAMINSULFON [Concomitant]
     Active Substance: METAMIZOLE
     Dosage: 2 TABLETS 4 TIMES DAILY, STRENGTH 500, UNIT NOT REPORTED
     Route: 048
     Dates: start: 201811

REACTIONS (2)
  - Neurological symptom [Not Recovered/Not Resolved]
  - Product use in unapproved indication [Unknown]

NARRATIVE: CASE EVENT DATE: 20181214
